FAERS Safety Report 22541051 (Version 2)
Quarter: 2023Q2

REPORT INFORMATION
  Report Type: Spontaneous
  Country: CA (occurrence: CA)
  Receive Date: 20230609
  Receipt Date: 20230615
  Transmission Date: 20230721
  Serious: No
  Sender: FDA-Public Use
  Company Number: CA-PFIZER INC-2019264776

PATIENT
  Age: 57 Year
  Sex: Male

DRUGS (1)
  1. XELJANZ [Suspect]
     Active Substance: TOFACITINIB CITRATE
     Indication: Colitis ulcerative
     Dosage: 5 MG, 2X/DAY
     Route: 048
     Dates: start: 20190401, end: 2021

REACTIONS (4)
  - Back pain [Recovering/Resolving]
  - Dyspepsia [Unknown]
  - Abdominal distension [Unknown]
  - Neck pain [Unknown]

NARRATIVE: CASE EVENT DATE: 20190101
